FAERS Safety Report 9834045 (Version 2)
Quarter: 2014Q3

REPORT INFORMATION
  Report Type: Spontaneous
  Country: US (occurrence: US)
  Receive Date: 20140122
  Receipt Date: 20140805
  Transmission Date: 20150326
  Serious: Yes (Disabling, Other)
  Sender: FDA-Public Use
  Company Number: US-ASTRAZENECA-2014SE03386

PATIENT
  Age: 59 Year
  Sex: Female

DRUGS (2)
  1. SYMBICORT [Suspect]
     Active Substance: BUDESONIDE\FORMOTEROL FUMARATE DIHYDRATE
     Indication: EMPHYSEMA
     Dosage: 160/4.5 MCG, 2 PUFFS TWO TIMES A DAY
     Route: 055
     Dates: end: 20140113
  2. SPIRIVA [Concomitant]
     Active Substance: TIOTROPIUM BROMIDE MONOHYDRATE

REACTIONS (5)
  - Dyspnoea [Not Recovered/Not Resolved]
  - Muscular weakness [Unknown]
  - Panic attack [Not Recovered/Not Resolved]
  - Device misuse [Unknown]
  - Drug dose omission [Unknown]

NARRATIVE: CASE EVENT DATE: 20140113
